FAERS Safety Report 6646226-8 (Version None)
Quarter: 2010Q1

REPORT INFORMATION
  Report Type: 
  Country: None (occurrence: None)
  Receive Date: 20100322
  Receipt Date: 20100322
  Transmission Date: 20100710
  Serious: Yes (Life-Threatening)
  Sender: FDA-Public Use
  Company Number: None

PATIENT

DRUGS (1)
  1. ABILIFY [Suspect]
     Dosage: 1 PM ONLY
     Dates: start: 20050101

REACTIONS (1)
  - DIABETES MELLITUS [None]
